FAERS Safety Report 7401115-6 (Version None)
Quarter: 2011Q2

REPORT INFORMATION
  Report Type: 
  Country: None (occurrence: None)
  Receive Date: 20110407
  Receipt Date: 20110327
  Transmission Date: 20111010
  Serious: No
  Sender: FDA-Public Use
  Company Number: US-BAYER-2011-027820

PATIENT
  Sex: Female

DRUGS (1)
  1. MIRENA [Suspect]
     Dosage: 20 MCG/24HR, UNK
     Route: 015

REACTIONS (6)
  - FATIGUE [None]
  - PREGNANCY WITH CONTRACEPTIVE DEVICE [None]
  - WEIGHT INCREASED [None]
  - INCREASED APPETITE [None]
  - METRORRHAGIA [None]
  - POLYMENORRHOEA [None]
